FAERS Safety Report 15342304 (Version 1)
Quarter: 2018Q3

REPORT INFORMATION
  Report Type: Spontaneous
  Country: FR (occurrence: FR)
  Receive Date: 20180902
  Receipt Date: 20180902
  Transmission Date: 20181010
  Serious: Yes (Hospitalization)
  Sender: FDA-Public Use
  Company Number: FR-ROCHE-2178383

PATIENT
  Age: 60 Year
  Sex: Male

DRUGS (9)
  1. TERCIAN [Concomitant]
     Active Substance: CYAMEMAZINE
     Route: 065
  2. ESOMEPRAZOLE [Concomitant]
     Active Substance: ESOMEPRAZOLE
     Route: 065
  3. VALIUM [Suspect]
     Active Substance: DIAZEPAM
     Indication: PRODUCT USED FOR UNKNOWN INDICATION
     Dosage: LAST DOSE ON 19/APR/2018
     Route: 048
     Dates: start: 201804
  4. ACTISKENAN [Suspect]
     Active Substance: MORPHINE SULFATE
     Indication: PRODUCT USED FOR UNKNOWN INDICATION
     Dosage: LAST DOSE ON 19/APR/2018
     Route: 048
  5. SKENAN [Suspect]
     Active Substance: MORPHINE SULFATE
     Indication: PRODUCT USED FOR UNKNOWN INDICATION
     Dosage: LAST DOSE ON 19/APR/2018
     Route: 048
  6. DEPAMIDE [Concomitant]
     Active Substance: VALPROMIDE
     Route: 065
  7. IMOVANE [Suspect]
     Active Substance: ZOPICLONE
     Indication: PRODUCT USED FOR UNKNOWN INDICATION
     Dosage: LAST DOSE ON 19/APR/2018
     Route: 048
  8. EFFEXOR [Concomitant]
     Active Substance: VENLAFAXINE HYDROCHLORIDE
     Route: 065
  9. LYRICA [Concomitant]
     Active Substance: PREGABALIN
     Route: 065

REACTIONS (4)
  - Dyspnoea [Recovered/Resolved]
  - Miosis [Recovered/Resolved]
  - Somnolence [Recovered/Resolved]
  - Overdose [Unknown]

NARRATIVE: CASE EVENT DATE: 20180419
